FAERS Safety Report 8615934-1 (Version None)
Quarter: 2012Q3

REPORT INFORMATION
  Report Type: 
  Country: None (occurrence: None)
  Receive Date: 20120823
  Receipt Date: 20120725
  Transmission Date: 20120928
  Serious: Yes (Hospitalization)
  Sender: FDA-Public Use
  Company Number: JP-GLAXOSMITHKLINE-B0818528A

PATIENT
  Sex: Female

DRUGS (7)
  1. FLUTICASONE PROPIONATE [Suspect]
     Indication: ASTHMA
     Route: 055
  2. PREDNISOLONE [Concomitant]
     Route: 048
  3. MEPTIN AIR [Concomitant]
     Indication: ASTHMA
     Route: 055
  4. HOKUNALIN [Concomitant]
     Route: 062
  5. THEOPHYLLINE [Concomitant]
     Route: 048
  6. ONON [Concomitant]
     Route: 048
  7. SOLU-CORTEF [Concomitant]
     Route: 042

REACTIONS (5)
  - ASTHMA [None]
  - DYSPNOEA [None]
  - ANALGESIC ASTHMA SYNDROME [None]
  - TREATMENT NONCOMPLIANCE [None]
  - CONDITION AGGRAVATED [None]
